FAERS Safety Report 12922507 (Version 1)
Quarter: 2016Q4

REPORT INFORMATION
  Report Type: Spontaneous
  Country: ES (occurrence: ES)
  Receive Date: 20161109
  Receipt Date: 20161109
  Transmission Date: 20170207
  Serious: Yes (Hospitalization)
  Sender: FDA-Public Use
  Company Number: ES-IPCA LABORATORIES LIMITED-IPC201611-000940

PATIENT
  Age: 51 Year
  Sex: Male

DRUGS (4)
  1. VALSARTAN. [Suspect]
     Active Substance: VALSARTAN
     Indication: HYPERTENSION
  2. DEXTROSE. [Concomitant]
     Active Substance: DEXTROSE
  3. OMEPRAZOLE. [Suspect]
     Active Substance: OMEPRAZOLE
  4. HYDROCHLOROTHIAZIDE. [Suspect]
     Active Substance: HYDROCHLOROTHIAZIDE
     Indication: HYPERTENSION

REACTIONS (6)
  - Hypomagnesaemia [Recovered/Resolved]
  - Wernicke^s encephalopathy [Recovered/Resolved]
  - Right hemisphere deficit syndrome [Recovered/Resolved]
  - Cerebral vasoconstriction [Recovered/Resolved]
  - Hypophosphataemia [Recovered/Resolved]
  - Hypocalcaemia [Recovered/Resolved]
